FAERS Safety Report 8848929 (Version 3)
Quarter: 2013Q4

REPORT INFORMATION
  Report Type: Spontaneous
  Country: US (occurrence: US)
  Receive Date: 20121018
  Receipt Date: 20131226
  Transmission Date: 20140711
  Serious: Yes (Hospitalization, Other)
  Sender: FDA-Public Use
  Company Number: US-BAYER-2012-107996

PATIENT
  Age: 23 Year
  Sex: Female
  Weight: 90.7 kg

DRUGS (3)
  1. OCELLA [Suspect]
     Indication: MENSTRUATION IRREGULAR
     Dosage: UNK
     Dates: start: 200302, end: 201105
  2. YASMIN [Suspect]
     Indication: MENSTRUATION IRREGULAR
     Dosage: UNK
     Dates: start: 200302, end: 201105
  3. VITAMIN D [Concomitant]
     Indication: VITAMIN D ABNORMAL
     Dosage: UNK
     Dates: start: 200801

REACTIONS (9)
  - Cholecystectomy [None]
  - Cholecystitis chronic [None]
  - Injury [None]
  - Pain [None]
  - Emotional distress [None]
  - Anxiety [None]
  - Psychological trauma [None]
  - Off label use [None]
  - Abdominal pain upper [None]
